FAERS Safety Report 9470763 (Version 3)
Quarter: 2015Q2

REPORT INFORMATION
  Report Type: Spontaneous
  Country: US (occurrence: US)
  Receive Date: 20130822
  Receipt Date: 20150611
  Transmission Date: 20150821
  Serious: Yes (Congenital Anomaly, Other)
  Sender: FDA-Public Use
  Company Number: US-ELI_LILLY_AND_COMPANY-US201308005425

PATIENT

DRUGS (9)
  1. PROZAC [Suspect]
     Active Substance: FLUOXETINE HYDROCHLORIDE
     Indication: DEPRESSION
     Route: 064
  2. SUDAFED [Concomitant]
     Active Substance: PSEUDOEPHEDRINE HYDROCHLORIDE
     Route: 064
  3. TYLENOL [Concomitant]
     Active Substance: ACETAMINOPHEN
     Route: 064
  4. PRENAT PLUS [Concomitant]
     Route: 064
  5. FERROUS SULFATE [Concomitant]
     Active Substance: FERROUS SULFATE\FERROUS SULFATE, DRIED
     Route: 064
  6. ROBITUSSIN A C [Concomitant]
     Route: 064
  7. AMOXIL                             /00249601/ [Concomitant]
     Active Substance: AMOXICILLIN
     Route: 064
  8. ERYTHROMYCIN. [Concomitant]
     Active Substance: ERYTHROMYCIN
     Route: 064
  9. PAXIL [Concomitant]
     Active Substance: PAROXETINE HYDROCHLORIDE
     Dosage: 20 MG, QD
     Route: 064

REACTIONS (3)
  - Aortic valve incompetence [Not Recovered/Not Resolved]
  - Bicuspid aortic valve [Not Recovered/Not Resolved]
  - Foetal exposure during pregnancy [Unknown]
